FAERS Safety Report 9443949 (Version 2)
Quarter: 2013Q3

REPORT INFORMATION
  Report Type: Spontaneous
  Country: US (occurrence: US)
  Receive Date: 20130807
  Receipt Date: 20130912
  Transmission Date: 20140515
  Serious: No
  Sender: FDA-Public Use
  Company Number: US-009507513-1308USA001620

PATIENT
  Age: 21 Year
  Sex: Female
  Weight: 95.69 kg

DRUGS (2)
  1. IMPLANON [Suspect]
     Indication: CONTRACEPTION
     Dosage: UNK
     Route: 059
     Dates: start: 201008, end: 2013
  2. IMPLANON [Suspect]
     Dosage: UNK
     Route: 059

REACTIONS (6)
  - Device dislocation [Recovered/Resolved]
  - Device deployment issue [Recovered/Resolved]
  - Medical device complication [Recovered/Resolved]
  - Hypomenorrhoea [Not Recovered/Not Resolved]
  - Oligomenorrhoea [Not Recovered/Not Resolved]
  - Device dislocation [Recovered/Resolved]
